FAERS Safety Report 9738962 (Version 3)
Quarter: 2013Q4

REPORT INFORMATION
  Report Type: Report from Study
  Country: PH (occurrence: PH)
  Receive Date: 20131209
  Receipt Date: 20131212
  Transmission Date: 20140711
  Serious: Yes (Hospitalization)
  Sender: FDA-Public Use
  Company Number: PHHY2013PH140924

PATIENT
  Sex: Female

DRUGS (2)
  1. TASIGNA [Suspect]
     Dosage: 600 MG
     Route: 048
     Dates: start: 20131030, end: 20131125
  2. TASIGNA [Suspect]
     Dosage: 600 MG
     Route: 048
     Dates: start: 20131209

REACTIONS (3)
  - Cholelithiasis [Unknown]
  - Kidney infection [Recovered/Resolved]
  - Urinary tract infection [Recovered/Resolved]
